FAERS Safety Report 13469545 (Version 1)
Quarter: 2017Q2

REPORT INFORMATION
  Report Type: Spontaneous
  Country: CZ (occurrence: CZ)
  Receive Date: 20170421
  Receipt Date: 20170421
  Transmission Date: 20170830
  Serious: Yes (Death, Hospitalization, Other)
  Sender: FDA-Public Use
  Company Number: PHHY2017CZ055743

PATIENT
  Age: 8 Week
  Sex: Female

DRUGS (2)
  1. GENTAMICIN. [Suspect]
     Active Substance: GENTAMICIN
     Indication: BACTERIAL INFECTION
     Route: 065
  2. CLARITHROMYCIN. [Suspect]
     Active Substance: CLARITHROMYCIN
     Indication: PERTUSSIS
     Route: 065

REACTIONS (4)
  - Cardiopulmonary failure [Fatal]
  - Pneumonia klebsiella [Fatal]
  - Condition aggravated [Fatal]
  - Acute respiratory distress syndrome [Fatal]
